FAERS Safety Report 10163303 (Version 1)
Quarter: 2014Q2

REPORT INFORMATION
  Report Type: Spontaneous
  Country: AU (occurrence: AU)
  Receive Date: 20140509
  Receipt Date: 20140509
  Transmission Date: 20141212
  Serious: Yes (Other)
  Sender: FDA-Public Use
  Company Number: CHPA2014AU006182

PATIENT
  Age: 72 Year
  Sex: Male

DRUGS (12)
  1. OTRIVIN [Suspect]
     Indication: NASOPHARYNGITIS
     Dosage: UNK, QD
     Route: 061
     Dates: start: 20140503, end: 20140503
  2. OTRIVIN [Suspect]
     Indication: SINUS DISORDER
  3. OTRIVIN [Suspect]
     Indication: RHINORRHOEA
  4. SUDAFED [Concomitant]
     Indication: NASOPHARYNGITIS
     Dosage: 60 MG, QD
     Route: 048
     Dates: start: 20140503, end: 20140503
  5. SUDAFED [Concomitant]
     Indication: SINUS DISORDER
  6. SUDAFED [Concomitant]
     Indication: RHINORRHOEA
  7. NEXIUM//ESOMEPRAZOLE MAGNESIUM [Concomitant]
     Indication: DYSPEPSIA
     Dosage: 40 MG, QD
     Route: 048
  8. ALPRIM [Concomitant]
     Indication: URINARY TRACT INFECTION
     Dosage: 300 MG, QD
     Route: 048
  9. CLARIMIN [Concomitant]
     Indication: NASOPHARYNGITIS
     Dosage: UNK
     Route: 048
     Dates: start: 20140503, end: 20140503
  10. CLARIMIN [Concomitant]
     Indication: SINUS DISORDER
  11. CLARIMIN [Concomitant]
     Indication: RHINORRHOEA
  12. NIZAC [Concomitant]
     Indication: DYSPEPSIA
     Dosage: 300 MG, QD
     Route: 048

REACTIONS (1)
  - Convulsion [Recovered/Resolved]
